FAERS Safety Report 21057738 (Version 1)
Quarter: 2022Q3

REPORT INFORMATION
  Report Type: Spontaneous
  Country: GB (occurrence: GB)
  Receive Date: 20220708
  Receipt Date: 20220708
  Transmission Date: 20221027
  Serious: Yes (Hospitalization)
  Sender: FDA-Public Use
  Company Number: None

PATIENT
  Age: 40 Year
  Sex: Female

DRUGS (3)
  1. CISPLATIN [Suspect]
     Active Substance: CISPLATIN
     Indication: Neoplasm malignant
     Dosage: UNK UNK, CYCLE (6 CYCLIC)
     Route: 065
     Dates: start: 201302, end: 201305
  2. PEMETREXED [Suspect]
     Active Substance: PEMETREXED
     Indication: Neoplasm malignant
     Dosage: UNK UNK, CYCLE (3 WEEKLY, 6 CYCLIC)
     Route: 065
     Dates: start: 201302, end: 201305
  3. PEMETREXED [Suspect]
     Active Substance: PEMETREXED
     Dosage: UNK UNK, CYCLE(3 WEEKLY/4WEEKLY TOTAL 18CYCLES)
     Route: 065
     Dates: start: 201306, end: 201408

REACTIONS (3)
  - Neoplasm progression [Unknown]
  - Headache [Unknown]
  - Neck pain [Unknown]

NARRATIVE: CASE EVENT DATE: 20140901
